FAERS Safety Report 4852559-8 (Version None)
Quarter: 2005Q4

REPORT INFORMATION
  Report Type: 
  Country: None (occurrence: None)
  Receive Date: 20051123
  Receipt Date: 20050622
  Transmission Date: 20060501
  Serious: No
  Sender: FDA-Public Use
  Company Number: 05SPA0134

PATIENT
  Sex: Male

DRUGS (1)
  1. GLIADEL [Suspect]
     Indication: GLIOMA

REACTIONS (1)
  - INTRACRANIAL HYPOTENSION [None]
